FAERS Safety Report 9917367 (Version 2)
Quarter: 2014Q1

REPORT INFORMATION
  Report Type: Spontaneous
  Country: US (occurrence: US)
  Receive Date: 20140221
  Receipt Date: 20140221
  Transmission Date: 20141002
  Serious: Yes (Other)
  Sender: FDA-Public Use
  Company Number: US-GE HEALTHCARE MEDICAL DIAGNOSTICS-OSCN-PR-0902S-0126

PATIENT
  Age: 62 Year
  Sex: Male

DRUGS (6)
  1. OMNISCAN [Suspect]
     Indication: PRODUCT USED FOR UNKNOWN INDICATION
     Route: 042
     Dates: start: 20040920, end: 20040920
  2. OMNISCAN [Suspect]
     Route: 042
     Dates: start: 20050428, end: 20050428
  3. MAGNEVIST [Suspect]
     Indication: PRODUCT USED FOR UNKNOWN INDICATION
     Route: 042
     Dates: start: 20040811, end: 20040811
  4. MAGNEVIST [Suspect]
     Route: 042
     Dates: start: 20040817, end: 20040817
  5. MAGNEVIST [Suspect]
     Route: 042
     Dates: start: 20040825, end: 20040825
  6. MAGNEVIST [Suspect]
     Route: 042
     Dates: start: 20041006, end: 20041006

REACTIONS (1)
  - Nephrogenic systemic fibrosis [Not Recovered/Not Resolved]
